FAERS Safety Report 5821825-1 (Version None)
Quarter: 2008Q3

REPORT INFORMATION
  Report Type: 
  Country: None (occurrence: None)
  Receive Date: 20080724
  Receipt Date: 20071206
  Transmission Date: 20090109
  Serious: No
  Sender: FDA-Public Use
  Company Number: US-BOEHRINGER INGELHEIM GMBH, GERMANY-2007-BP-02067BP

PATIENT
  Sex: Female
  Weight: 77 kg

DRUGS (1)
  1. MIRAPEX [Suspect]
     Indication: PARKINSON'S DISEASE
     Dosage: 0.5 MG THREE TIMES DAILY UP TO 1.5 MG THREE TIMES DAILY
     Route: 048
     Dates: start: 20000204, end: 20050803

REACTIONS (7)
  - COMPULSIVE SHOPPING [None]
  - EMOTIONAL DISTRESS [None]
  - HYPERSEXUALITY [None]
  - INJURY [None]
  - LIBIDO INCREASED [None]
  - OBSESSIVE-COMPULSIVE DISORDER [None]
  - PATHOLOGICAL GAMBLING [None]
